FAERS Safety Report 9902184 (Version 3)
Quarter: 2014Q1

REPORT INFORMATION
  Report Type: Report from Study
  Country: US (occurrence: US)
  Receive Date: 20140217
  Receipt Date: 20140311
  Transmission Date: 20141002
  Serious: Yes (Hospitalization)
  Sender: FDA-Public Use
  Company Number: US-JNJFOC-20140206970

PATIENT
  Age: 18 Year
  Sex: Male
  Weight: 107.2 kg

DRUGS (6)
  1. REMICADE [Suspect]
     Indication: CROHN^S DISEASE
     Route: 042
     Dates: start: 20110413
  2. REMICADE [Suspect]
     Indication: CROHN^S DISEASE
     Route: 042
     Dates: start: 20130312, end: 20130312
  3. 5-ASA [Concomitant]
     Route: 048
  4. HUMIRA [Concomitant]
     Route: 065
     Dates: start: 20140217
  5. OMEPRAZOLE [Concomitant]
     Route: 065
  6. VITAMIN D W/ CALCIUM [Concomitant]
     Route: 065

REACTIONS (1)
  - Crohn^s disease [Not Recovered/Not Resolved]
